FAERS Safety Report 8586677-8 (Version None)
Quarter: 2012Q3

REPORT INFORMATION
  Report Type: 
  Country: None (occurrence: None)
  Receive Date: 20120810
  Receipt Date: 20120731
  Transmission Date: 20120928
  Serious: Yes (Hospitalization)
  Sender: FDA-Public Use
  Company Number: US-ACTELION-A-NJ2012-69749

PATIENT
  Age: 66 Year
  Sex: Male

DRUGS (6)
  1. SILDENAFIL [Concomitant]
  2. EPOPROSTENOL SODIUM [Suspect]
     Dosage: UNK
     Route: 041
     Dates: start: 20100821, end: 20120101
  3. TRACLEER [Suspect]
     Indication: PULMONARY ARTERIAL HYPERTENSION
     Dosage: UNK
     Route: 048
  4. PLAVIX [Concomitant]
  5. ASPIRIN [Concomitant]
  6. EPOPROSTENOL SODIUM [Suspect]
     Indication: PULMONARY ARTERIAL HYPERTENSION
     Dosage: 23.4 NG/KG, PER MIN
     Route: 041
     Dates: start: 20120101

REACTIONS (1)
  - MEDICAL DEVICE COMPLICATION [None]
